FAERS Safety Report 12455825 (Version 1)
Quarter: 2016Q2

REPORT INFORMATION
  Report Type: Spontaneous
  Country: US (occurrence: US)
  Receive Date: 20160610
  Receipt Date: 20160610
  Transmission Date: 20160815
  Serious: Yes (Hospitalization, Disabling, Other)
  Sender: FDA-Public Use
  Company Number: US-009507513-1111USA03005

PATIENT
  Sex: Female

DRUGS (4)
  1. ALENDRONATE SODIUM. [Suspect]
     Active Substance: ALENDRONATE SODIUM
     Indication: OSTEOPOROSIS
     Dosage: 70 MG, QW
     Route: 048
     Dates: start: 20080225
  2. FOSAMAX [Suspect]
     Active Substance: ALENDRONATE SODIUM
     Indication: OSTEOPOROSIS
     Dosage: 70 MG, QW
     Route: 048
     Dates: start: 20041111, end: 200906
  3. CALTRATE WITH VITAMIN D [Concomitant]
     Active Substance: CALCIUM CARBONATE\CHOLECALCIFEROL
     Indication: PRODUCT USED FOR UNKNOWN INDICATION
     Dosage: UNK, QD
     Route: 065
  4. BONIVA [Suspect]
     Active Substance: IBANDRONATE SODIUM
     Indication: OSTEOPOROSIS
     Dosage: 150 MG, QM
     Route: 048
     Dates: start: 201001

REACTIONS (22)
  - Back pain [Unknown]
  - Fungal infection [Unknown]
  - Femur fracture [Unknown]
  - Herpes zoster [Unknown]
  - Hypertension [Unknown]
  - Nephrolithiasis [Unknown]
  - Breast cancer [Unknown]
  - Hyperlipidaemia [Unknown]
  - Femur fracture [Unknown]
  - Arteriosclerosis coronary artery [Unknown]
  - Tooth extraction [Unknown]
  - Impaired healing [Unknown]
  - Asthma [Unknown]
  - Insomnia [Unknown]
  - Knee arthroplasty [Unknown]
  - Arthralgia [Unknown]
  - Dizziness [Unknown]
  - Drug administration error [Unknown]
  - Type 2 diabetes mellitus [Unknown]
  - Femur fracture [Unknown]
  - Bundle branch block left [Unknown]
  - Hypertensive heart disease [Unknown]

NARRATIVE: CASE EVENT DATE: 2004
